FAERS Safety Report 8235878-7 (Version None)
Quarter: 2012Q1

REPORT INFORMATION
  Report Type: 
  Country: None (occurrence: None)
  Receive Date: 20120326
  Receipt Date: 20120320
  Transmission Date: 20120608
  Serious: Yes (Other)
  Sender: FDA-Public Use
  Company Number: US-PFIZER INC-2012073486

PATIENT
  Sex: Female
  Weight: 56.236 kg

DRUGS (3)
  1. PRISTIQ [Suspect]
     Indication: MOOD SWINGS
     Dosage: 50 MG, 1X/DAY
     Dates: start: 20111001
  2. PERCOCET [Concomitant]
     Indication: NERVE INJURY
  3. PERCOCET [Concomitant]
     Indication: INTERVERTEBRAL DISC PROTRUSION
     Dosage: FOUR TABLETS OF ^10 MG^ DAILY
     Route: 048

REACTIONS (7)
  - DEPRESSION [None]
  - CRYING [None]
  - ABNORMAL DREAMS [None]
  - NAUSEA [None]
  - FATIGUE [None]
  - SOMNOLENCE [None]
  - VOMITING [None]
